FAERS Safety Report 9236940 (Version 1)
Quarter: 2013Q2

REPORT INFORMATION
  Report Type: Other
  Country: GB (occurrence: GB)
  Receive Date: 20130417
  Receipt Date: 20130417
  Transmission Date: 20140414
  Serious: Yes (Disabling)
  Sender: FDA-Public Use
  Company Number: GB-ACTAVIS-2013-06644

PATIENT
  Age: 42 Year
  Sex: Male

DRUGS (1)
  1. BISOPROLOL (UNKNOWN) [Suspect]
     Indication: ATRIAL FIBRILLATION
     Dosage: 2.5 MG, UNKNOWN
     Route: 048
     Dates: start: 20121101

REACTIONS (5)
  - Dizziness [Unknown]
  - Nausea [Unknown]
  - Decreased appetite [Unknown]
  - Sleep disorder [Unknown]
  - Dizziness [Unknown]
